FAERS Safety Report 10952246 (Version 1)
Quarter: 2015Q1

REPORT INFORMATION
  Report Type: Spontaneous
  Country: US (occurrence: US)
  Receive Date: 20150325
  Receipt Date: 20150325
  Transmission Date: 20150721
  Serious: No
  Sender: FDA-Public Use
  Company Number: US-ASTRAZENECA-2015SE27027

PATIENT
  Sex: Female

DRUGS (3)
  1. VALSARTAN W/HIDROCLOROTIAZIDA [Concomitant]
  2. PRILOSEC OTC [Suspect]
     Active Substance: OMEPRAZOLE MAGNESIUM
     Indication: DIARRHOEA
     Dosage: ONE TABLET ONCE A DAY FOR 4 DAYS
     Route: 048
     Dates: start: 20150313, end: 20150316
  3. METOPROLOL SUCCINATE. [Concomitant]
     Active Substance: METOPROLOL SUCCINATE
     Route: 048

REACTIONS (5)
  - Oesophageal pain [Unknown]
  - Gastrointestinal pain [Unknown]
  - Abdominal pain upper [Unknown]
  - Abdominal discomfort [Unknown]
  - Product use issue [Unknown]
